FAERS Safety Report 16105916 (Version 1)
Quarter: 2019Q1

REPORT INFORMATION
  Report Type: Spontaneous
  Country: CA (occurrence: CA)
  Receive Date: 20190322
  Receipt Date: 20190322
  Transmission Date: 20190418
  Serious: Yes (Hospitalization)
  Sender: FDA-Public Use
  Company Number: CA-PFIZER INC-2019121113

PATIENT
  Age: 43 Year
  Sex: Female

DRUGS (6)
  1. LYRICA [Concomitant]
     Active Substance: PREGABALIN
     Dosage: UNK
  2. ZOLOFT [Interacting]
     Active Substance: SERTRALINE HYDROCHLORIDE
     Indication: ANXIETY
  3. ZOLOFT [Suspect]
     Active Substance: SERTRALINE HYDROCHLORIDE
     Indication: DEPRESSION
     Dosage: 25 MG, 1X/DAY
     Route: 048
  4. MAXALT [Interacting]
     Active Substance: RIZATRIPTAN BENZOATE
     Indication: MIGRAINE
     Dosage: 10 MG, AS NEEDED
     Route: 065
  5. TOPAMAX [Concomitant]
     Active Substance: TOPIRAMATE
     Dosage: UNK
  6. LOSEC [Concomitant]
     Active Substance: OMEPRAZOLE
     Dosage: UNK

REACTIONS (2)
  - Drug interaction [Recovered/Resolved]
  - Seizure [Recovered/Resolved]
